FAERS Safety Report 7176102-6 (Version None)
Quarter: 2010Q4

REPORT INFORMATION
  Report Type: 
  Country: None (occurrence: None)
  Receive Date: 20101220
  Receipt Date: 20101208
  Transmission Date: 20110411
  Serious: No
  Sender: FDA-Public Use
  Company Number: US-BIOGENIDEC-2010BI043324

PATIENT
  Age: 28 Year
  Sex: Female

DRUGS (3)
  1. TYSABRI [Suspect]
     Indication: MULTIPLE SCLEROSIS
     Route: 042
     Dates: start: 20100419
  2. PERCOCET [Concomitant]
     Indication: PAIN
     Route: 048
     Dates: start: 20100901
  3. HYDROCODONE [Concomitant]
     Indication: PAIN
     Route: 048
     Dates: start: 20100901

REACTIONS (7)
  - ASTHENIA [None]
  - BACK PAIN [None]
  - GAIT DISTURBANCE [None]
  - LOSS OF CONTROL OF LEGS [None]
  - MUSCULOSKELETAL DISORDER [None]
  - PAIN [None]
  - PAIN IN EXTREMITY [None]
